FAERS Safety Report 9259371 (Version 4)
Quarter: 2020Q3

REPORT INFORMATION
  Report Type: Spontaneous
  Country: US (occurrence: US)
  Receive Date: 20130427
  Receipt Date: 20200807
  Transmission Date: 20201103
  Serious: Yes (Hospitalization, Other)
  Sender: FDA-Public Use
  Company Number: US-009507513-1304USA015600

PATIENT
  Age: 25 Year
  Sex: Female

DRUGS (3)
  1. HALDOL [Concomitant]
     Active Substance: HALOPERIDOL
  2. COGENTIN [Concomitant]
     Active Substance: BENZTROPINE MESYLATE
  3. SAPHRIS [Suspect]
     Active Substance: ASENAPINE MALEATE
     Indication: PSYCHOTIC DISORDER
     Dosage: 5 MG, UNK
     Route: 060
     Dates: start: 20130410

REACTIONS (5)
  - Tremor [Recovered/Resolved]
  - Tachycardia [Recovered/Resolved]
  - Heart rate increased [Recovered/Resolved]
  - Serotonin syndrome [Recovered/Resolved]
  - Body temperature increased [Recovered/Resolved]
